FAERS Safety Report 8107871-6 (Version None)
Quarter: 2012Q1

REPORT INFORMATION
  Report Type: 
  Country: None (occurrence: None)
  Receive Date: 20120202
  Receipt Date: 20120124
  Transmission Date: 20120608
  Serious: Yes (Other)
  Sender: FDA-Public Use
  Company Number: US-TEVA-318952USA

PATIENT
  Sex: Female

DRUGS (5)
  1. OLANZAPINE [Concomitant]
     Indication: DEPRESSION
  2. TRAZODONE HCL [Suspect]
     Indication: SLEEP DISORDER
     Route: 048
     Dates: start: 20110803, end: 20110803
  3. LEVOTHYROXINE SODIUM [Concomitant]
     Indication: HYPOTHYROIDISM
  4. FLUTICASONE PROPIONATE [Concomitant]
     Indication: HYPERSENSITIVITY
  5. METFORMIN HCL [Concomitant]
     Indication: INSULIN RESISTANCE

REACTIONS (5)
  - HEART RATE IRREGULAR [None]
  - CHEST DISCOMFORT [None]
  - CARDIAC DISORDER [None]
  - ANAPHYLACTOID REACTION [None]
  - HYPERTENSION [None]
